FAERS Safety Report 9296688 (Version 1)
Quarter: 2013Q2

REPORT INFORMATION
  Report Type: Report from Study
  Country: US (occurrence: US)
  Receive Date: 20130517
  Receipt Date: 20130517
  Transmission Date: 20140414
  Serious: Yes (Death)
  Sender: FDA-Public Use
  Company Number: PHHO2013US006432

PATIENT
  Sex: 0

DRUGS (2)
  1. ZORTRESS [Suspect]
     Indication: RENAL TRANSPLANT
  2. NEORAL [Suspect]
     Indication: RENAL TRANSPLANT

REACTIONS (1)
  - Cardiac arrest [Fatal]
